FAERS Safety Report 23105582 (Version 1)
Quarter: 2023Q4

REPORT INFORMATION
  Report Type: Spontaneous
  Country: US (occurrence: US)
  Receive Date: 20231025
  Receipt Date: 20231025
  Transmission Date: 20240109
  Serious: No
  Sender: FDA-Public Use
  Company Number: US-ELI_LILLY_AND_COMPANY-US202310012426

PATIENT
  Sex: Female

DRUGS (1)
  1. VERZENIO [Suspect]
     Active Substance: ABEMACICLIB
     Indication: Product used for unknown indication
     Dosage: 250 MG, DAILY (200 MG AND 50 MG FOR A TOTAL 250)
     Route: 065

REACTIONS (3)
  - Feeling abnormal [Unknown]
  - Abdominal discomfort [Unknown]
  - Cough [Unknown]
